FAERS Safety Report 20292367 (Version 6)
Quarter: 2022Q3

REPORT INFORMATION
  Report Type: Spontaneous
  Country: CA (occurrence: CA)
  Receive Date: 20220104
  Receipt Date: 20220909
  Transmission Date: 20221026
  Serious: Yes (Other)
  Sender: FDA-Public Use
  Company Number: CA-PFIZER INC-202101802668

PATIENT
  Age: 68 Year
  Sex: Male

DRUGS (11)
  1. RUXIENCE [Suspect]
     Active Substance: RITUXIMAB-PVVR
     Indication: Rheumatoid arthritis
     Dosage: 1000 MG DAY 1 AND DAY 15
     Route: 042
     Dates: start: 20210525, end: 20210610
  2. RUXIENCE [Suspect]
     Active Substance: RITUXIMAB-PVVR
     Dosage: 1000 MG DAY 1 AND DAY 15
     Route: 042
     Dates: start: 20210610
  3. RUXIENCE [Suspect]
     Active Substance: RITUXIMAB-PVVR
     Dosage: 500 MG, ONCE
     Route: 042
     Dates: start: 20220330, end: 20220330
  4. RUXIENCE [Suspect]
     Active Substance: RITUXIMAB-PVVR
     Dosage: 500 MG, ONE DOSE, NOT GIVEN YET
     Route: 042
  5. AMLODIPINE [Concomitant]
     Active Substance: AMLODIPINE BESYLATE
     Dosage: UNK
  6. ARAVA [Concomitant]
     Active Substance: LEFLUNOMIDE
     Indication: Arthritis
     Dosage: 1 DF, DOSAGE INFO: UNKNOWN
     Route: 065
     Dates: start: 202006
  7. ARAVA [Concomitant]
     Active Substance: LEFLUNOMIDE
     Indication: Lung disorder
  8. ATORVASTATIN [Concomitant]
     Active Substance: ATORVASTATIN
     Dosage: UNK
  9. HYDROCHLOROTHIAZIDE [Concomitant]
     Active Substance: HYDROCHLOROTHIAZIDE
     Dosage: UNK
  10. PREDNISONE [Concomitant]
     Active Substance: PREDNISONE
     Dosage: 1 DF, DOSAGE INFO: UNKNOWN
     Route: 065
     Dates: start: 202003
  11. PERINDOPRIL [Concomitant]
     Active Substance: PERINDOPRIL
     Dosage: UNK

REACTIONS (3)
  - Idiopathic pulmonary fibrosis [Unknown]
  - Off label use [Unknown]
  - COVID-19 [Recovered/Resolved]
